FAERS Safety Report 4714622-1 (Version None)
Quarter: 2005Q3

REPORT INFORMATION
  Report Type: 
  Country: None (occurrence: None)
  Receive Date: 20050714
  Receipt Date: 20050714
  Transmission Date: 20060218
  Serious: Yes (Life-Threatening)
  Sender: FDA-Public Use
  Company Number: None

PATIENT
  Age: 34 Year
  Sex: Female
  Weight: 60 kg

DRUGS (2)
  1. TOPAMAX [Suspect]
     Indication: CONVULSION
     Dosage: BID ORAL
     Route: 048
     Dates: start: 20040101, end: 20050712
  2. TOPAMAX [Suspect]
     Indication: CONVULSION
     Dosage: AT BEDTIME ORAL
     Route: 048
     Dates: start: 20040101, end: 20050712

REACTIONS (1)
  - HYPERTHERMIA [None]
